FAERS Safety Report 13808549 (Version 2)
Quarter: 2017Q3

REPORT INFORMATION
  Report Type: Spontaneous
  Country: JP (occurrence: JP)
  Receive Date: 20170728
  Receipt Date: 20170818
  Transmission Date: 20171127
  Serious: Yes (Death)
  Sender: FDA-Public Use
  Company Number: JP-BAYER-2017-140893

PATIENT
  Age: 67 Year
  Sex: Female
  Weight: 48 kg

DRUGS (7)
  1. LOCOID [Concomitant]
     Active Substance: HYDROCORTISONE BUTYRATE
     Dosage: UNK
     Dates: start: 20131023
  2. PROPETO [Concomitant]
     Dosage: UNK
     Dates: start: 20131023
  3. MYSLEE [Concomitant]
     Active Substance: ZOLPIDEM TARTRATE
     Route: 048
  4. HIRUDOID [Concomitant]
     Active Substance: GLYCOSAMINOGLYCANS
     Dosage: UNK
     Dates: start: 20131023
  5. STIVARGA [Suspect]
     Active Substance: REGORAFENIB
     Indication: COLON CANCER
     Dosage: DAILY DOSE 160 MG
     Route: 048
     Dates: start: 20131023, end: 20131028
  6. MYSER [Concomitant]
     Active Substance: DIFLUPREDNATE
     Dosage: UNK
     Dates: start: 20131023
  7. MINOMYCIN [Concomitant]
     Active Substance: MINOCYCLINE HYDROCHLORIDE
     Dosage: DAILY DOSE 400 MG
     Route: 048
     Dates: start: 20131023

REACTIONS (2)
  - Metrorrhagia [Recovered/Resolved]
  - Colon cancer [Fatal]

NARRATIVE: CASE EVENT DATE: 20131023
